FAERS Safety Report 22939847 (Version 3)
Quarter: 2024Q1

REPORT INFORMATION
  Report Type: Spontaneous
  Country: US (occurrence: US)
  Receive Date: 20230913
  Receipt Date: 20240220
  Transmission Date: 20240410
  Serious: Yes (Other)
  Sender: FDA-Public Use
  Company Number: US-PFIZER INC-PV202300154410

PATIENT
  Age: 74 Year
  Sex: Female
  Weight: 74.376 kg

DRUGS (2)
  1. IBRANCE [Suspect]
     Active Substance: PALBOCICLIB
     Indication: Breast cancer metastatic
     Dosage: 1 TABLET EVERYDAY 1-21 OF EACH 28-DAY CYCLE W/WATER, W/WITHOUT FOOD, SAME EACH DAY
     Route: 048
     Dates: start: 20220218
  2. FASLODEX [Concomitant]
     Active Substance: FULVESTRANT
     Dosage: UNK
     Dates: start: 20220218

REACTIONS (1)
  - Pancytopenia [Unknown]
